FAERS Safety Report 10726091 (Version 2)
Quarter: 2015Q1

REPORT INFORMATION
  Report Type: Spontaneous
  Country: US (occurrence: US)
  Receive Date: 20150121
  Receipt Date: 20150317
  Transmission Date: 20150721
  Serious: Yes (Other)
  Sender: FDA-Public Use
  Company Number: US-BAYER-2015-008128

PATIENT
  Age: 89 Year
  Sex: Male

DRUGS (1)
  1. ADALAT CC [Suspect]
     Active Substance: NIFEDIPINE
     Indication: SYSTOLIC HYPERTENSION
     Dosage: 90 MG, QD
     Route: 048
     Dates: start: 2000

REACTIONS (3)
  - Drug ineffective [None]
  - Blood pressure systolic increased [None]
  - Nausea [None]
